FAERS Safety Report 7935038-0 (Version None)
Quarter: 2011Q4

REPORT INFORMATION
  Report Type: 
  Country: None (occurrence: None)
  Receive Date: 20111122
  Receipt Date: 20111114
  Transmission Date: 20120403
  Serious: Yes (Death, Hospitalization)
  Sender: FDA-Public Use
  Company Number: IE-MEDIMMUNE-MEDI-0013937

PATIENT
  Age: 8 Month
  Sex: Female

DRUGS (2)
  1. OXYGEN [Concomitant]
  2. SYNAGIS [Suspect]
     Route: 030

REACTIONS (6)
  - CARDIO-RESPIRATORY ARREST [None]
  - MALAISE [None]
  - APNOEA [None]
  - UPPER RESPIRATORY TRACT INFECTION [None]
  - DEATH [None]
  - CONGENITAL CARDIOVASCULAR ANOMALY [None]
